FAERS Safety Report 9258751 (Version 1)
Quarter: 2013Q2

REPORT INFORMATION
  Report Type: Spontaneous
  Country: US (occurrence: US)
  Receive Date: 20130426
  Receipt Date: 20130426
  Transmission Date: 20140414
  Serious: No
  Sender: FDA-Public Use
  Company Number: US-B.I. PHARMACEUTICALS,INC./RIDGEFIELD-2013-BI-10205BP

PATIENT
  Age: 70 Year
  Sex: Male

DRUGS (4)
  1. TRADJENTA [Suspect]
     Indication: BLOOD GLUCOSE INCREASED
     Dosage: 5 MG
     Route: 048
     Dates: start: 2012
  2. TESTOSTERONE [Concomitant]
     Indication: BLOOD TESTOSTERONE DECREASED
  3. CRESTOR [Concomitant]
     Indication: BLOOD CHOLESTEROL INCREASED
     Dosage: 40 MG
     Route: 048
  4. MONOPRIL [Concomitant]
     Indication: HYPERTENSION
     Route: 048

REACTIONS (1)
  - Nephrolithiasis [Not Recovered/Not Resolved]
